FAERS Safety Report 15011218 (Version 3)
Quarter: 2018Q3

REPORT INFORMATION
  Report Type: Spontaneous
  Country: NL (occurrence: NL)
  Receive Date: 20180614
  Receipt Date: 20180720
  Transmission Date: 20181010
  Serious: Yes (Other)
  Sender: FDA-Public Use
  Company Number: NL-009507513-1806NLD006212

PATIENT
  Age: 5 Month
  Sex: Male
  Weight: 6.3 kg

DRUGS (24)
  1. AMLODIPINE [Concomitant]
     Active Substance: AMLODIPINE BESYLATE
     Dosage: 2 X PER DAY 1.5 MG
     Route: 048
     Dates: start: 20170301, end: 20170406
  2. GRANISETRON FRESENIUS KABI [Concomitant]
     Indication: PROPHYLAXIS OF NAUSEA AND VOMITING
     Dosage: 2 X PER DAY; 200 MICROGRAM
     Route: 042
     Dates: start: 20170216, end: 20170519
  3. DIPIDOLOR [Concomitant]
     Active Substance: PIRITRAMIDE
     Dosage: 20 MICROGRAM/KG/H
     Route: 042
     Dates: start: 20170216, end: 20170319
  4. ANTILYMPHOCYTE IMMUNOGLOBULIN [Concomitant]
     Active Substance: THYMOCYTE IMMUNE GLOBULIN NOS
     Indication: BONE MARROW CONDITIONING REGIMEN
     Dosage: UNK
  5. FLUDARABINE PHOSPHATE. [Concomitant]
     Active Substance: FLUDARABINE PHOSPHATE
     Indication: BONE MARROW CONDITIONING REGIMEN
     Dosage: UNK
  6. HYDROCORTISONE ACETATE. [Concomitant]
     Active Substance: HYDROCORTISONE ACETATE
     Route: 003
  7. PANTOPRAZOLE [Concomitant]
     Active Substance: PANTOPRAZOLE
     Dosage: 1 X PER DAY 10 MG
     Route: 042
     Dates: start: 20170226, end: 20170522
  8. IVEMEND [Suspect]
     Active Substance: FOSAPREPITANT DIMEGLUMINE
     Indication: PROPHYLAXIS OF NAUSEA AND VOMITING
     Dosage: LOADING DOSE: 3 MG/KG, ONCE
     Dates: start: 20170228, end: 20170301
  9. SODIUM CHLORIDE. [Concomitant]
     Active Substance: SODIUM CHLORIDE
     Route: 045
  10. TREOSULFAN [Concomitant]
     Active Substance: TREOSULFAN
     Indication: BONE MARROW CONDITIONING REGIMEN
     Dosage: UNK
  11. EMEND [Suspect]
     Active Substance: APREPITANT
     Indication: PROPHYLAXIS OF NAUSEA AND VOMITING
     Dosage: 2 MG/KG, ONCE DAILY
  12. PIPERACILLIN AND TAZOBACTAM [Concomitant]
     Active Substance: PIPERACILLIN SODIUM\TAZOBACTAM SODIUM
     Dosage: UNK
  13. ACETAMINOPHEN. [Concomitant]
     Active Substance: ACETAMINOPHEN
     Dosage: 6 X PER DAY 50 MG
     Route: 042
     Dates: start: 20170216, end: 20170404
  14. FUROSEMIDE SANDOZ [Concomitant]
     Active Substance: FUROSEMIDE
     Dosage: 2 X PER DAY 3 MG
     Route: 042
     Dates: start: 20170307, end: 20170419
  15. VORICONAZOLE. [Suspect]
     Active Substance: VORICONAZOLE
     Dosage: UNK
  16. CATAPRESAN [Concomitant]
     Active Substance: CLONIDINE
     Dosage: STRENGTH: 0.15 MG/ML AMPOULE 1ML; 0.2 MICROGRAM/KG/HOUR
     Route: 042
     Dates: start: 20170216, end: 20170413
  17. THIOTEPA. [Concomitant]
     Active Substance: THIOTEPA
     Indication: BONE MARROW CONDITIONING REGIMEN
     Dosage: UNK
  18. IVEMEND [Suspect]
     Active Substance: FOSAPREPITANT DIMEGLUMINE
     Dosage: DAILY DOSE: 2 MG/KG ONCE DAILY
     Dates: start: 20170301, end: 20170314
  19. DAVITAMON D [Concomitant]
     Dosage: DROPS, STRENGTH: 960 IU/ML
  20. PREDNISOLONE SODIUM SUCCINATE [Concomitant]
     Active Substance: PREDNISOLONE SODIUM SUCCINATE
     Dosage: 2 X PER DAY 3 MG
     Route: 042
     Dates: start: 20170307, end: 20170405
  21. TARGOCID [Concomitant]
     Active Substance: TEICOPLANIN
     Dosage: 1 X PER DAY 60 MG
     Route: 042
     Dates: start: 20170228, end: 20170324
  22. PREDNISONE. [Concomitant]
     Active Substance: PREDNISONE
     Indication: BONE MARROW CONDITIONING REGIMEN
     Dosage: UNK
  23. SANDIMMUN [Concomitant]
     Active Substance: CYCLOSPORINE
     Indication: BONE MARROW CONDITIONING REGIMEN
     Dosage: 2 X  PER DAY 18 MG
     Route: 042
     Dates: start: 20170310, end: 20170328
  24. LEVETIRACETAM. [Concomitant]
     Active Substance: LEVETIRACETAM
     Dosage: 2 X PER DAY 60 MG
     Route: 042
     Dates: start: 20170222, end: 20170410

REACTIONS (4)
  - No adverse event [Unknown]
  - Off label use [Unknown]
  - Hepatic failure [Recovered/Resolved]
  - Drug administered to patient of inappropriate age [Unknown]

NARRATIVE: CASE EVENT DATE: 20170309
